FAERS Safety Report 12409302 (Version 1)
Quarter: 2016Q2

REPORT INFORMATION
  Report Type: Spontaneous
  Country: ES (occurrence: ES)
  Receive Date: 20160526
  Receipt Date: 20160526
  Transmission Date: 20160815
  Serious: Yes (Other)
  Sender: FDA-Public Use
  Company Number: ES-SPECTRUM PHARMACEUTICALS, INC.-16-Z-ES-00148

PATIENT
  Age: 78 Year
  Sex: Female

DRUGS (3)
  1. ZEVALIN [Suspect]
     Active Substance: IBRITUMOMAB TIUXETAN
     Indication: B-CELL LYMPHOMA
     Dosage: 0.3 - 0.4 MCI/KG, SINGLE, ON DAY 8
     Route: 040
  2. RITUXIMAB [Suspect]
     Active Substance: RITUXIMAB
     Indication: B-CELL LYMPHOMA
     Dosage: 250 MG/M2, SINGLE, ON DAY 1
     Route: 042
  3. RITUXIMAB [Suspect]
     Active Substance: RITUXIMAB
     Dosage: 250 MG/M2, SINGLE, ON DAY 8
     Route: 042

REACTIONS (1)
  - Squamous cell carcinoma [Unknown]
